FAERS Safety Report 9799759 (Version 1)
Quarter: 2014Q1

REPORT INFORMATION
  Report Type: Spontaneous
  Country: US (occurrence: US)
  Receive Date: 20140106
  Receipt Date: 20140106
  Transmission Date: 20141002
  Serious: No
  Sender: FDA-Public Use
  Company Number: US-GILEAD-2010-0034345

PATIENT
  Age: 76 Year
  Sex: Female

DRUGS (1)
  1. LETAIRIS [Suspect]
     Indication: PULMONARY ARTERIAL HYPERTENSION
     Route: 048
     Dates: start: 20101112, end: 20101206

REACTIONS (5)
  - Neck pain [Unknown]
  - Back pain [Unknown]
  - Chills [Unknown]
  - Lethargy [Unknown]
  - Hot flush [Unknown]
